FAERS Safety Report 6498203-8 (Version None)
Quarter: 2009Q4

REPORT INFORMATION
  Report Type: 
  Country: None (occurrence: None)
  Receive Date: 20091215
  Receipt Date: 20091208
  Transmission Date: 20100525
  Serious: Yes (Other)
  Sender: FDA-Public Use
  Company Number: A0834134A

PATIENT
  Age: 46 Year
  Sex: Female

DRUGS (2)
  1. ADVAIR DISKUS 100/50 [Suspect]
     Indication: ASTHMA
     Route: 055
  2. ZYRTEC [Concomitant]

REACTIONS (4)
  - COUGH [None]
  - DYSPNOEA EXERTIONAL [None]
  - PNEUMONIA [None]
  - SPUTUM INCREASED [None]
